FAERS Safety Report 20835190 (Version 1)
Quarter: 2022Q2

REPORT INFORMATION
  Report Type: Spontaneous
  Country: US (occurrence: None)
  Receive Date: 20220516
  Receipt Date: 20220516
  Transmission Date: 20220721
  Serious: Yes (unspecified)
  Sender: FDA-Public Use
  Company Number: None

PATIENT
  Age: 67 Year
  Sex: Female
  Weight: 94.5 kg

DRUGS (3)
  1. UCERIS [Suspect]
     Active Substance: BUDESONIDE
     Indication: Colitis ulcerative
     Dosage: OTHER QUANTITY : 1 CANISTER;?FREQUENCY : TWICE A DAY;?
     Route: 054
     Dates: start: 20220511, end: 20220514
  2. LIALDA [Concomitant]
     Active Substance: MESALAMINE
  3. MINERALS\VITAMINS [Concomitant]
     Active Substance: MINERALS\VITAMINS

REACTIONS (5)
  - Pruritus [None]
  - Rash [None]
  - Paraesthesia ear [None]
  - Swelling of eyelid [None]
  - Economic problem [None]

NARRATIVE: CASE EVENT DATE: 20220514
